FAERS Safety Report 6309025-2 (Version None)
Quarter: 2009Q3

REPORT INFORMATION
  Report Type: 
  Country: None (occurrence: None)
  Receive Date: 20090814
  Receipt Date: 20070703
  Transmission Date: 20100115
  Serious: Yes (Other)
  Sender: FDA-Public Use
  Company Number: US-ASTRAZENECA-2007UW09612

PATIENT
  Age: 9985 Day
  Sex: Male

DRUGS (10)
  1. SEROQUEL [Suspect]
     Indication: SLEEP DISORDER
     Route: 048
     Dates: start: 20000101, end: 20061201
  2. SEROQUEL [Suspect]
     Dosage: 20 MG TO 300 MG
     Route: 048
     Dates: start: 20001025
  3. AMBIEN [Concomitant]
     Dates: start: 20010606
  4. LORAZEPAM [Concomitant]
     Dates: start: 20010606
  5. WELLBUTRIN [Concomitant]
     Dates: start: 20010606
  6. RISPERDAL [Concomitant]
     Dates: start: 20010606
  7. AVANDIA [Concomitant]
     Dates: start: 20010606
  8. VICODIN [Concomitant]
     Dates: start: 20031027
  9. DIOVAN [Concomitant]
     Dates: start: 20031027
  10. ZESTRIL [Concomitant]
     Dates: start: 20010606

REACTIONS (6)
  - DIABETES MELLITUS [None]
  - DIABETES MELLITUS INADEQUATE CONTROL [None]
  - DIABETIC KETOACIDOSIS [None]
  - DIABETIC NEUROPATHY [None]
  - NEUROPATHY PERIPHERAL [None]
  - TYPE 1 DIABETES MELLITUS [None]
